FAERS Safety Report 18223064 (Version 3)
Quarter: 2020Q3

REPORT INFORMATION
  Report Type: Spontaneous
  Country: US (occurrence: US)
  Receive Date: 20200902
  Receipt Date: 20200910
  Transmission Date: 20201103
  Serious: Yes (Hospitalization)
  Sender: FDA-Public Use
  Company Number: US-SA-2020SA236718

PATIENT

DRUGS (1)
  1. DUPIXENT [Suspect]
     Active Substance: DUPILUMAB
     Indication: DERMATITIS ATOPIC
     Dosage: UNK
     Route: 058

REACTIONS (5)
  - Pain [Recovered/Resolved]
  - Head discomfort [Recovered/Resolved]
  - Giant cell arteritis [Recovered/Resolved]
  - Headache [Recovered/Resolved]
  - Rhinalgia [Recovered/Resolved]
